FAERS Safety Report 8189612-X (Version None)
Quarter: 2012Q1

REPORT INFORMATION
  Report Type: 
  Country: None (occurrence: None)
  Receive Date: 20120307
  Receipt Date: 20120305
  Transmission Date: 20120608
  Serious: No
  Sender: FDA-Public Use
  Company Number: US-PFIZER INC-2012059994

PATIENT
  Sex: Female
  Weight: 72.562 kg

DRUGS (4)
  1. CHANTIX [Suspect]
     Indication: SMOKING CESSATION THERAPY
     Dosage: 0.5 MG DAILY
     Route: 048
     Dates: start: 20120225, end: 20120201
  2. LEVAQUIN [Concomitant]
     Indication: SINUSITIS
     Dosage: UNK
  3. FOSAMAX [Concomitant]
     Indication: CARPAL TUNNEL SYNDROME
     Dosage: UNK
  4. CHANTIX [Suspect]
     Dosage: UNK
     Route: 048
     Dates: start: 20120201

REACTIONS (1)
  - INSOMNIA [None]
